FAERS Safety Report 7443966-8 (Version None)
Quarter: 2011Q2

REPORT INFORMATION
  Report Type: 
  Country: None (occurrence: None)
  Receive Date: 20110429
  Receipt Date: 20110422
  Transmission Date: 20111010
  Serious: No
  Sender: FDA-Public Use
  Company Number: US-BIOGENIDEC-2010BI021736

PATIENT
  Sex: Male

DRUGS (1)
  1. TYSABRI [Suspect]
     Indication: MULTIPLE SCLEROSIS
     Route: 042
     Dates: start: 20091123

REACTIONS (10)
  - LOSS OF CONTROL OF LEGS [None]
  - WHEELCHAIR USER [None]
  - VITAMIN D DEFICIENCY [None]
  - MULTIPLE SCLEROSIS [None]
  - GAIT DISTURBANCE [None]
  - COORDINATION ABNORMAL [None]
  - TREMOR [None]
  - STRESS [None]
  - WALKING AID USER [None]
  - MUSCULAR WEAKNESS [None]
